FAERS Safety Report 7036870-0 (Version None)
Quarter: 2010Q4

REPORT INFORMATION
  Report Type: 
  Country: None (occurrence: None)
  Receive Date: 20101011
  Receipt Date: 20101005
  Transmission Date: 20110411
  Serious: Yes (Hospitalization)
  Sender: FDA-Public Use
  Company Number: PHHO2010DE05645

PATIENT
  Sex: Female
  Weight: 106 kg

DRUGS (3)
  1. CGS 20267 T30748+TAB [Suspect]
     Indication: BREAST CANCER
     Dosage: UNK
     Dates: start: 20080101
  2. CLEXANE [Concomitant]
  3. ANALGESICS [Concomitant]

REACTIONS (4)
  - LYMPHADENECTOMY [None]
  - MALIGNANT NEOPLASM PROGRESSION [None]
  - METASTASES TO LIVER [None]
  - METASTASES TO LYMPH NODES [None]
